FAERS Safety Report 11150201 (Version 2)
Quarter: 2015Q4

REPORT INFORMATION
  Report Type: Report from Study
  Country: US (occurrence: US)
  Receive Date: 20150529
  Receipt Date: 20151021
  Transmission Date: 20160304
  Serious: Yes (Other)
  Sender: FDA-Public Use
  Company Number: US-ASTRAZENECA-2015SE42644

PATIENT
  Sex: Female

DRUGS (1)
  1. OLAPARIB [Suspect]
     Active Substance: OLAPARIB
     Indication: UTERINE CANCER
     Route: 048

REACTIONS (4)
  - Product use issue [Unknown]
  - Haemoglobin decreased [Unknown]
  - Ascites [Recovering/Resolving]
  - Off label use [Unknown]
